FAERS Safety Report 4755378-6 (Version None)
Quarter: 2005Q3

REPORT INFORMATION
  Report Type: 
  Country: None (occurrence: None)
  Receive Date: 20050826
  Receipt Date: 20050331
  Transmission Date: 20060218
  Serious: Yes (Other)
  Sender: FDA-Public Use
  Company Number: USA-2002-0000823

PATIENT
  Sex: Male

DRUGS (1)
  1. OXYCONTIN [Suspect]
     Indication: PAIN
     Dosage: 20 MG, BID
     Dates: start: 20001201, end: 20010401

REACTIONS (11)
  - ARTHRALGIA [None]
  - BACK PAIN [None]
  - DRUG DEPENDENCE [None]
  - EMOTIONAL DISTRESS [None]
  - HYPOAESTHESIA [None]
  - INADEQUATE ANALGESIA [None]
  - INSOMNIA [None]
  - MUSCLE SPASMS [None]
  - MYALGIA [None]
  - PAIN [None]
  - PAIN IN EXTREMITY [None]
